FAERS Safety Report 13518425 (Version 1)
Quarter: 2017Q2

REPORT INFORMATION
  Report Type: Spontaneous
  Country: US (occurrence: US)
  Receive Date: 20170505
  Receipt Date: 20170505
  Transmission Date: 20170830
  Serious: No
  Sender: FDA-Public Use
  Company Number: None

PATIENT
  Age: 5 Month
  Sex: Male
  Weight: 8.55 kg

DRUGS (1)
  1. MONTELUKAST SODIUM. [Suspect]
     Active Substance: MONTELUKAST SODIUM
     Indication: MULTIPLE ALLERGIES
     Dosage: ?          QUANTITY:30 PACKETS;?
     Route: 048
     Dates: start: 20170427, end: 20170502

REACTIONS (6)
  - Feeling jittery [None]
  - Middle insomnia [None]
  - Crying [None]
  - Screaming [None]
  - Nightmare [None]
  - Fear [None]

NARRATIVE: CASE EVENT DATE: 20170427
